FAERS Safety Report 7057803-7 (Version None)
Quarter: 2010Q4

REPORT INFORMATION
  Report Type: 
  Country: None (occurrence: None)
  Receive Date: 20101021
  Receipt Date: 20101021
  Transmission Date: 20110411
  Serious: Yes (Other)
  Sender: FDA-Public Use
  Company Number: None

PATIENT
  Age: 49 Year
  Sex: Male
  Weight: 79.3795 kg

DRUGS (2)
  1. CYMBALTA [Suspect]
     Indication: FIBROMYALGIA
     Dosage: 60MG 1 A DAY PO
     Route: 048
  2. CYMBALTA [Suspect]
     Indication: PAIN
     Dosage: 60MG 1 A DAY PO
     Route: 048

REACTIONS (5)
  - BRAIN INJURY [None]
  - DRUG INEFFECTIVE [None]
  - FEELING ABNORMAL [None]
  - PARAESTHESIA [None]
  - TINNITUS [None]
